FAERS Safety Report 7347010-2 (Version None)
Quarter: 2011Q1

REPORT INFORMATION
  Report Type: 
  Country: None (occurrence: None)
  Receive Date: 20110311
  Receipt Date: 20110228
  Transmission Date: 20110831
  Serious: Yes (Hospitalization)
  Sender: FDA-Public Use
  Company Number: PHHY2010GB19032

PATIENT
  Sex: Male

DRUGS (24)
  1. PIRENZEPINE [Concomitant]
     Indication: SALIVARY HYPERSECRETION
     Dosage: 50 MG, TID
     Route: 048
  2. LITHIUM CARBONATE [Concomitant]
     Dosage: 1 G NOCTE
     Route: 048
  3. LEVOTHYROXINE [Concomitant]
     Indication: HYPOTHYROIDISM
     Dosage: 200 UG
     Route: 048
  4. SENNA [Concomitant]
     Indication: CONSTIPATION
     Dosage: 1 DF
     Route: 048
  5. CHLORPROMAZINE [Concomitant]
     Dosage: PRN
  6. LORAZEPAM [Concomitant]
     Dosage: PRN
  7. CLOZARIL [Suspect]
     Indication: SCHIZOPHRENIA
     Dosage: 125 MG MANE, 400 MG NOCTE
     Route: 048
     Dates: start: 19980521
  8. TOLTERODINE TARTRATE [Concomitant]
  9. CLOZARIL [Suspect]
     Dosage: 350 MG, BID
  10. CLOZARIL [Suspect]
     Dosage: 125MG MANE, 325MG NOCTE
     Route: 048
     Dates: start: 20090801, end: 20100201
  11. SALBUTAMOL [Concomitant]
     Indication: ASTHMA
     Dosage: 1-2 PUFFS TDS
  12. OMEPRAZOLE [Concomitant]
     Indication: GASTROINTESTINAL DISORDER
     Dosage: 40 MG, BID
     Route: 048
  13. CO-CODAMOL [Concomitant]
     Dosage: PRN
  14. CLOZARIL [Suspect]
     Dosage: 675MG DAILY
     Route: 048
     Dates: start: 20050701
  15. OLANZAPINE [Concomitant]
     Dosage: 10 MG, BID
  16. ATROPINE [Concomitant]
     Dosage: EYE DROPS ONE DAILY
     Route: 061
  17. FERROUS FUMARATE [Concomitant]
     Indication: ANAEMIA
     Dosage: 210 MG
     Route: 048
  18. DOXYCYCLINE [Concomitant]
     Indication: SKIN INFECTION
     Dosage: 500 MG
     Route: 048
  19. CHLORHEXIDINE GLUCONATE [Concomitant]
     Dosage: PRN
  20. BECLOMETHASONE DIPROPIONATE [Concomitant]
     Indication: ASTHMA
     Dosage: 2 PUFFS DAILY
  21. OMEPRAZOLE [Concomitant]
     Dosage: 20 MG, BID
  22. GAVISCON [Concomitant]
     Dosage: PRN
  23. VALPROATE SODIUM [Concomitant]
     Dosage: 1 G, BID
     Route: 048
  24. DIAZEPAM [Concomitant]
     Dosage: PRN

REACTIONS (35)
  - TACHYCARDIA [None]
  - INFECTION [None]
  - PHYSICAL ASSAULT [None]
  - FALL [None]
  - URINARY INCONTINENCE [None]
  - FAECAL INCONTINENCE [None]
  - SEDATION [None]
  - SALIVARY HYPERSECRETION [None]
  - HAEMOGLOBIN DECREASED [None]
  - LOWER LIMB FRACTURE [None]
  - DELUSION [None]
  - IMPAIRED SELF-CARE [None]
  - HEART RATE IRREGULAR [None]
  - DYSARTHRIA [None]
  - TREMOR [None]
  - TARDIVE DYSKINESIA [None]
  - ATROPHY [None]
  - MENTAL DISORDER [None]
  - ATAXIA [None]
  - THROMBOCYTOPENIA [None]
  - SEXUALLY INAPPROPRIATE BEHAVIOUR [None]
  - COGNITIVE DISORDER [None]
  - MICTURITION DISORDER [None]
  - FURUNCLE [None]
  - MANIA [None]
  - INSOMNIA [None]
  - MENTAL IMPAIRMENT [None]
  - THINKING ABNORMAL [None]
  - ELECTROCARDIOGRAM QT PROLONGED [None]
  - SINUS TACHYCARDIA [None]
  - URINARY RETENTION [None]
  - NEUTROPENIA [None]
  - IRRITABILITY [None]
  - QRS AXIS ABNORMAL [None]
  - PALPITATIONS [None]
